FAERS Safety Report 7938510-2 (Version None)
Quarter: 2011Q4

REPORT INFORMATION
  Report Type: 
  Country: None (occurrence: None)
  Receive Date: 20111123
  Receipt Date: 20111006
  Transmission Date: 20120403
  Serious: Yes (Hospitalization)
  Sender: FDA-Public Use
  Company Number: DE-ROCHE-732198

PATIENT
  Sex: Female
  Weight: 53 kg

DRUGS (10)
  1. AMLODIPINE [Concomitant]
  2. TACROLIMUS [Suspect]
     Indication: RENAL TRANSPLANT
     Dosage: DATE OF LAST DOSE PRIOR TO SAE: 01 OCT 2010
     Route: 048
     Dates: start: 20100815, end: 20110519
  3. BASILIXIMAB [Suspect]
     Indication: RENAL TRANSPLANT
     Dosage: DATE OF LAST DOSE PRIOR TO SAE: 19 AUG 2010
     Route: 042
     Dates: start: 20100815, end: 20100819
  4. TACROLIMUS [Suspect]
     Route: 048
     Dates: start: 20110601, end: 20110603
  5. PREDNISOLONE HEMISUCCINATE [Suspect]
     Indication: RENAL TRANSPLANT
     Route: 048
     Dates: start: 20100815, end: 20100822
  6. PANTOL [Concomitant]
  7. CALCIUM CARBONATE [Concomitant]
  8. MYCOPHENOLATE MOFETIL (CELLCEPT) [Suspect]
     Indication: RENAL TRANSPLANT
     Dosage: DATE OF LAST DOSE PRIOR TO SAE: 01 OCT 2010
     Route: 048
     Dates: start: 20100815, end: 20110518
  9. MYCOPHENOLATE MOFETIL (CELLCEPT) [Suspect]
     Route: 048
  10. EZETIMIBE [Concomitant]

REACTIONS (4)
  - TRANSPLANT FAILURE [None]
  - CYTOMEGALOVIRUS INFECTION [None]
  - TOXICITY TO VARIOUS AGENTS [None]
  - PYREXIA [None]
